FAERS Safety Report 6796053-6 (Version None)
Quarter: 2010Q2

REPORT INFORMATION
  Report Type: 
  Country: None (occurrence: None)
  Receive Date: 20100625
  Receipt Date: 20100615
  Transmission Date: 20101027
  Serious: Yes (Other)
  Sender: FDA-Public Use
  Company Number: US-JNJFOC-20100402870

PATIENT
  Sex: Male
  Weight: 90.72 kg

DRUGS (9)
  1. REMICADE [Suspect]
     Indication: RHEUMATOID ARTHRITIS
     Dosage: 2006 THROUGH 2009 (EXACT DATES ILLEGIBLE)
     Route: 042
  2. REMICADE [Suspect]
     Dosage: 2006 THROUGH 2009 (EXACT DATES ILLEGIBLE)
     Route: 042
  3. REMICADE [Suspect]
     Dosage: 2006 THROUGH 2009 (EXACT DATES ILLEGIBLE)
     Route: 042
  4. REMICADE [Suspect]
     Dosage: 2006 THROUGH 2009 (EXACT DATES ILLEGIBLE)
     Route: 042
  5. REMICADE [Suspect]
     Dosage: DOSE: ^10 VIALS^
     Route: 042
  6. REMICADE [Suspect]
     Dosage: 2006 THROUGH 2009 (EXACT DATES ILLEGIBLE)
     Route: 042
  7. REMICADE [Suspect]
     Dosage: 2006 THROUGH 2009 (EXACT DATES ILLEGIBLE)
     Route: 042
  8. REMICADE [Suspect]
     Dosage: 2006 THROUGH 2009 (EXACT DATES ILLEGIBLE)
     Route: 042
  9. REMICADE [Suspect]
     Dosage: 2006 THROUGH 2009 (EXACT DATES ILLEGIBLE)
     Route: 042

REACTIONS (2)
  - ABASIA [None]
  - GOUT [None]
